FAERS Safety Report 5921338-2 (Version None)
Quarter: 2008Q4

REPORT INFORMATION
  Report Type: 
  Country: None (occurrence: None)
  Receive Date: 20081014
  Receipt Date: 20081008
  Transmission Date: 20090506
  Serious: Yes (Death)
  Sender: FDA-Public Use
  Company Number: 2008JP003792

PATIENT
  Age: 70 Year
  Sex: Male
  Weight: 45.9 kg

DRUGS (8)
  1. PROGRAF [Suspect]
     Indication: RENAL TRANSPLANT
     Dosage: 0.72 MG,UID/QD, IV NOS
     Route: 042
     Dates: start: 20070417, end: 20070422
  2. PROGRAF [Suspect]
     Indication: RENAL TRANSPLANT
     Dosage: 4 MG, BID, ORAL, ORAL
     Route: 048
     Dates: start: 20070423, end: 20070717
  3. PROGRAF [Suspect]
     Indication: RENAL TRANSPLANT
     Dosage: 4 MG, BID, ORAL, ORAL
     Route: 048
     Dates: start: 20070718, end: 20070724
  4. PREDNISOLONE [Suspect]
     Indication: RENAL TRANSPLANT
     Dosage: 5 MG, BID, ORAL
     Route: 048
     Dates: start: 20070420
  5. CELLCEPT [Suspect]
     Indication: RENAL TRANSPLANT
     Dosage: 500 MG, BID, ORAL; 250 MG, BID, ORAL,250 MG UID/QD
     Route: 048
     Dates: start: 20070415, end: 20070717
  6. CELLCEPT [Suspect]
     Indication: RENAL TRANSPLANT
     Dosage: 500 MG, BID, ORAL; 250 MG, BID, ORAL,250 MG UID/QD
     Route: 048
     Dates: start: 20070717, end: 20070724
  7. CELLCEPT [Suspect]
     Indication: RENAL TRANSPLANT
     Dosage: 500 MG, BID, ORAL; 250 MG, BID, ORAL,250 MG UID/QD
     Route: 048
     Dates: start: 20070726, end: 20070727
  8. SIMULECT [Concomitant]

REACTIONS (10)
  - BLOOD PRESSURE DECREASED [None]
  - BRADYCARDIA [None]
  - CARDIAC ARREST [None]
  - COLLAPSE OF LUNG [None]
  - INTERSTITIAL LUNG DISEASE [None]
  - MOUTH BREATHING [None]
  - NO THERAPEUTIC RESPONSE [None]
  - PNEUMOCYSTIS JIROVECI PNEUMONIA [None]
  - PNEUMOTHORAX [None]
  - RESPIRATORY DISORDER [None]
